FAERS Safety Report 5854692-0 (Version None)
Quarter: 2008Q3

REPORT INFORMATION
  Report Type: 
  Country: None (occurrence: None)
  Receive Date: 20080822
  Receipt Date: 20070820
  Transmission Date: 20090109
  Serious: No
  Sender: FDA-Public Use
  Company Number: US-ABBOTT-07P-163-0378634-00

PATIENT
  Sex: Female
  Weight: 58.112 kg

DRUGS (2)
  1. SYNTHROID [Suspect]
     Indication: HYPOTHYROIDISM
     Route: 048
     Dates: start: 20040101
  2. SYNTHROID [Suspect]
     Route: 048
     Dates: start: 20040101

REACTIONS (2)
  - DYSPNOEA [None]
  - EXTRASYSTOLES [None]
